FAERS Safety Report 19279822 (Version 1)
Quarter: 2021Q2

REPORT INFORMATION
  Report Type: Report from Study
  Country: IT (occurrence: IT)
  Receive Date: 20210520
  Receipt Date: 20210520
  Transmission Date: 20210717
  Serious: Yes (Other)
  Sender: FDA-Public Use
  Company Number: IT-PFIZER INC-2021532636

PATIENT
  Age: 30 Year
  Sex: Female

DRUGS (4)
  1. STILNOX [Suspect]
     Active Substance: ZOLPIDEM TARTRATE
     Indication: DRUG ABUSE
     Dosage: 10 DF, TOTAL
     Route: 048
     Dates: start: 20210308, end: 20210309
  2. PASADEN [ETIZOLAM] [Suspect]
     Active Substance: ETIZOLAM
     Indication: DRUG ABUSE
     Dosage: 25 ML, TOTAL
     Route: 048
     Dates: start: 20210308, end: 20210309
  3. XANAX [Suspect]
     Active Substance: ALPRAZOLAM
     Indication: DRUG ABUSE
     Dosage: 10 DF, TOTAL
     Route: 048
     Dates: start: 20210308, end: 20210309
  4. CIPRALEX MELTZ [ESCITALOPRAM OXALATE] [Suspect]
     Active Substance: ESCITALOPRAM OXALATE
     Indication: DRUG ABUSE
     Dosage: 12.5 ML, TOTAL
     Route: 048
     Dates: start: 20210308, end: 20210309

REACTIONS (3)
  - Sopor [Recovered/Resolved]
  - Drug abuse [Recovered/Resolved]
  - Intentional self-injury [Recovered/Resolved]

NARRATIVE: CASE EVENT DATE: 20210309
